FAERS Safety Report 17020363 (Version 1)
Quarter: 2019Q4

REPORT INFORMATION
  Report Type: Spontaneous
  Country: US (occurrence: US)
  Receive Date: 20191005
  Receipt Date: 20191005
  Transmission Date: 20200122
  Serious: Yes (Death, Hospitalization)
  Sender: FDA-Public Use
  Company Number: None

PATIENT
  Age: 60 Year
  Sex: Female
  Weight: 100 kg

DRUGS (2)
  1. ALIMTA [Suspect]
     Active Substance: PEMETREXED DISODIUM
     Dates: end: 20190530
  2. MK-3475 (PEMBROLIZUMAB) [Suspect]
     Active Substance: PEMBROLIZUMAB
     Dates: end: 20190530

REACTIONS (7)
  - Sepsis [None]
  - Respiratory failure [None]
  - Obstructive airways disorder [None]
  - Mouth haemorrhage [None]
  - Pleural effusion [None]
  - Unresponsive to stimuli [None]
  - Hypoxia [None]

NARRATIVE: CASE EVENT DATE: 20190816
